FAERS Safety Report 9786676 (Version 1)
Quarter: 2013Q4

REPORT INFORMATION
  Report Type: Spontaneous
  Country: IN (occurrence: IN)
  Receive Date: 20131227
  Receipt Date: 20131227
  Transmission Date: 20140711
  Serious: Yes (Other)
  Sender: FDA-Public Use
  Company Number: IN-MYLANLABS-2013S1028643

PATIENT
  Age: 75 Year
  Sex: Male

DRUGS (7)
  1. BUPROPION [Suspect]
     Indication: MAJOR DEPRESSION
     Dosage: 75 MG/DAY
     Route: 065
  2. BUPROPION [Suspect]
     Indication: MAJOR DEPRESSION
     Dosage: GRADUALLY INCREASED TO 300 MG/DAY
     Route: 065
  3. AMLODIPINE [Concomitant]
     Indication: HYPERTENSION
     Dosage: 5 MG/DAY
     Route: 065
  4. ATENOLOL [Concomitant]
     Indication: HYPERTENSION
     Dosage: 50 MG/DAY
     Route: 065
  5. CARBIDOPA [Concomitant]
     Indication: PARKINSON^S DISEASE
     Dosage: 37.5 MG/DAY
     Route: 065
  6. LEVODOPA [Concomitant]
     Indication: PARKINSON^S DISEASE
     Dosage: 150 MG/DAY
     Route: 065
  7. CLONAZEPAM [Concomitant]
     Indication: MAJOR DEPRESSION
     Dosage: TAB CLONAZEPAM 0.75 MG/DAY
     Route: 065

REACTIONS (1)
  - Hyponatraemia [Recovered/Resolved]
